FAERS Safety Report 4711296-0 (Version None)
Quarter: 2005Q3

REPORT INFORMATION
  Report Type: 
  Country: None (occurrence: None)
  Receive Date: 20050711
  Receipt Date: 20050623
  Transmission Date: 20060218
  Serious: Yes (Hospitalization)
  Sender: FDA-Public Use
  Company Number: 5447

PATIENT
  Age: 28 Year
  Sex: Female

DRUGS (3)
  1. CLINDESSE [Suspect]
     Dosage: ONE APPLICATED INTRAVAGINALLY
     Route: 067
     Dates: start: 20050820
  2. SYNTHROID [Concomitant]
  3. ZOLOFT [Concomitant]

REACTIONS (3)
  - DEHYDRATION [None]
  - NAUSEA [None]
  - VOMITING [None]
